FAERS Safety Report 6228986-3 (Version None)
Quarter: 2009Q2

REPORT INFORMATION
  Report Type: 
  Country: None (occurrence: None)
  Receive Date: 20090615
  Receipt Date: 20090605
  Transmission Date: 20091009
  Serious: Yes (Hospitalization)
  Sender: FDA-Public Use
  Company Number: JP-ASTRAZENECA-2009SE02474

PATIENT
  Age: 71 Year
  Sex: Male

DRUGS (3)
  1. CANDESARTAN CILEXETIL [Suspect]
     Indication: HYPERTENSION
     Route: 048
     Dates: end: 20090201
  2. ALDACTAZINE [Interacting]
     Indication: HYPERTENSION
     Route: 065
     Dates: end: 20090201
  3. ALLOPURINOL [Concomitant]
     Indication: HYPERURICAEMIA
     Route: 065

REACTIONS (5)
  - DRUG INTERACTION [None]
  - LOSS OF CONSCIOUSNESS [None]
  - MALAISE [None]
  - ORTHOSTATIC HYPOTENSION [None]
  - VOMITING [None]
